FAERS Safety Report 25187605 (Version 1)
Quarter: 2025Q2

REPORT INFORMATION
  Report Type: Spontaneous
  Country: FR (occurrence: FR)
  Receive Date: 20250411
  Receipt Date: 20250411
  Transmission Date: 20250717
  Serious: Yes (Hospitalization)
  Sender: ORGANON
  Company Number: FR-GRUNENTHAL-2025-104566

PATIENT
  Age: 8 Day
  Sex: Male
  Weight: 2.56 kg

DRUGS (16)
  1. MIRTAZAPINE [Suspect]
     Active Substance: MIRTAZAPINE
     Indication: Product used for unknown indication
     Dosage: 15 MG/DAY
     Route: 064
     Dates: end: 20231106
  2. MIRTAZAPINE [Suspect]
     Active Substance: MIRTAZAPINE
     Dosage: 15 MG/DAY
     Route: 048
  3. MIRTAZAPINE [Suspect]
     Active Substance: MIRTAZAPINE
     Dosage: 15 MILLIGRAM, 1/DAY
     Route: 064
     Dates: end: 20231106
  4. SYMBICORT [Suspect]
     Active Substance: BUDESONIDE\FORMOTEROL FUMARATE DIHYDRATE
     Dosage: 2 DOSAGE FORM, QD
     Route: 064
     Dates: end: 20231106
  5. ESOMEPRAZOLE [Suspect]
     Active Substance: ESOMEPRAZOLE
     Dosage: 20 MILLIGRAM, 1/DAY
     Route: 064
     Dates: end: 20231106
  6. SUBUTEX [Suspect]
     Active Substance: BUPRENORPHINE HYDROCHLORIDE
     Indication: Product used for unknown indication
     Dosage: 24 MG/D
     Route: 064
     Dates: end: 20231106
  7. SUBUTEX [Suspect]
     Active Substance: BUPRENORPHINE HYDROCHLORIDE
     Dosage: 24 MG/DAY
     Route: 048
  8. SUBUTEX [Suspect]
     Active Substance: BUPRENORPHINE HYDROCHLORIDE
     Dosage: 24 MILLIGRAM, 1/DAY
     Route: 064
     Dates: end: 20231106
  9. ALPRAZOLAM [Suspect]
     Active Substance: ALPRAZOLAM
     Indication: Product used for unknown indication
     Route: 064
     Dates: end: 20231106
  10. ALPRAZOLAM [Suspect]
     Active Substance: ALPRAZOLAM
     Route: 048
  11. ALPRAZOLAM [Suspect]
     Active Substance: ALPRAZOLAM
     Dosage: 10 MILLIGRAM, 1/DAY
     Route: 064
     Dates: end: 20231106
  12. ZOLPIDEM [Suspect]
     Active Substance: ZOLPIDEM TARTRATE
     Indication: Product used for unknown indication
     Dosage: 10 MG/DAY
     Route: 064
     Dates: end: 20231106
  13. ZOLPIDEM [Suspect]
     Active Substance: ZOLPIDEM TARTRATE
     Dosage: 10 MG/DAY
     Route: 048
  14. ZOLPIDEM [Suspect]
     Active Substance: ZOLPIDEM TARTRATE
     Dosage: 10 MILLIGRAM, 1/DAY
     Route: 064
     Dates: end: 20231106
  15. ARNICA MONTANA (HOMEOPATHIC) [Suspect]
     Active Substance: HOMEOPATHICS
     Route: 064
     Dates: end: 20231106
  16. TOBACCO LEAF [Suspect]
     Active Substance: TOBACCO LEAF
     Route: 064
     Dates: end: 20231106

REACTIONS (3)
  - Jaundice neonatal [Recovered/Resolved]
  - Drug withdrawal syndrome neonatal [Recovered/Resolved]
  - Foetal exposure during pregnancy [Recovered/Resolved]

NARRATIVE: CASE EVENT DATE: 20231109
